FAERS Safety Report 24831127 (Version 1)
Quarter: 2025Q1

REPORT INFORMATION
  Report Type: Report from Study
  Country: CA (occurrence: CA)
  Receive Date: 20250110
  Receipt Date: 20250110
  Transmission Date: 20250409
  Serious: Yes (Disabling)
  Sender: BIOCON
  Company Number: CA-MYLANLABS-2022M1047756

PATIENT

DRUGS (2)
  1. HULIO [Suspect]
     Active Substance: ADALIMUMAB-FKJP
     Indication: Product used for unknown indication
     Dosage: 40 MILLIGRAM, Q2W (EVERY OTHER WEEK)
     Route: 058
     Dates: start: 20211117
  2. HULIO [Suspect]
     Active Substance: ADALIMUMAB-FKJP
     Route: 058

REACTIONS (7)
  - Condition aggravated [Unknown]
  - Stress [Unknown]
  - Illness [Unknown]
  - Memory impairment [Unknown]
  - Confusional state [Unknown]
  - Injection site urticaria [Recovered/Resolved]
  - Inappropriate schedule of product administration [Unknown]

NARRATIVE: CASE EVENT DATE: 20240601
